FAERS Safety Report 23162811 (Version 1)
Quarter: 2023Q4

REPORT INFORMATION
  Report Type: Spontaneous
  Country: US (occurrence: US)
  Receive Date: 20231109
  Receipt Date: 20231109
  Transmission Date: 20240110
  Serious: No
  Sender: FDA-Public Use
  Company Number: US-OPELLA-2023OHG013370

PATIENT
  Age: 14 Year
  Sex: Male

DRUGS (1)
  1. ALLEGRA ALLERGY [Suspect]
     Active Substance: FEXOFENADINE HYDROCHLORIDE
     Dosage: HALF A TABLET AT MORNING AND HALF A TABLET AT NIGHT

REACTIONS (4)
  - Therapeutic response decreased [Unknown]
  - Wrong technique in product usage process [Unknown]
  - Labelled drug-food interaction medication error [Unknown]
  - No adverse event [Unknown]
